FAERS Safety Report 8789268 (Version 1)
Quarter: 2012Q4

REPORT INFORMATION
  Report Type: Spontaneous
  Country: US (occurrence: None)
  Receive Date: 20120910
  Receipt Date: 20120910
  Transmission Date: 20130627
  Serious: No
  Sender: FDA-Public Use
  Company Number: None

PATIENT
  Age: 56 Year
  Sex: Female
  Weight: 77.11 kg

DRUGS (2)
  1. LEVAQUIN [Suspect]
     Indication: SORE THROAT
     Dates: start: 20101228, end: 20110102
  2. AVELOX [Suspect]
     Dates: start: 20110705, end: 20110708

REACTIONS (2)
  - Arthralgia [None]
  - Sciatica [None]
